FAERS Safety Report 4545845-2 (Version None)
Quarter: 2005Q1

REPORT INFORMATION
  Report Type: 
  Country: None (occurrence: None)
  Receive Date: 20050105
  Receipt Date: 20050105
  Transmission Date: 20050727
  Serious: Yes (Hospitalization)
  Sender: FDA-Public Use
  Company Number: None

PATIENT
  Sex: Female
  Weight: 55.3388 kg

DRUGS (2)
  1. DOCETAXEL [Suspect]
     Indication: LUNG NEOPLASM MALIGNANT
     Dosage: DOCETAXEL  WEEK X2Q 21DAY INTRAVENOUS
     Route: 042
     Dates: start: 20040729, end: 20041118
  2. GEMCITABINE [Suspect]
     Indication: LUNG NEOPLASM MALIGNANT
     Dosage: WEEKLY X2Q21DAY INTRAVENOUS
     Route: 042
     Dates: start: 20040729, end: 20041118

REACTIONS (7)
  - CATHETER RELATED COMPLICATION [None]
  - CELLULITIS [None]
  - INTERNATIONAL NORMALISED RATIO DECREASED [None]
  - JUGULAR VEIN THROMBOSIS [None]
  - PHLEBOTHROMBOSIS [None]
  - SUBCLAVIAN VEIN THROMBOSIS [None]
  - THERAPEUTIC RESPONSE DECREASED [None]
